FAERS Safety Report 7432062-1 (Version None)
Quarter: 2011Q1

REPORT INFORMATION
  Report Type: 
  Country: None (occurrence: None)
  Receive Date: 20110302
  Receipt Date: 20101129
  Transmission Date: 20110831
  Serious: No
  Sender: FDA-Public Use
  Company Number: 020653

PATIENT
  Sex: Female
  Weight: 57 kg

DRUGS (4)
  1. CIMZIA [Suspect]
     Indication: CROHN'S DISEASE
     Dosage: 400 MG 1X/4 WEEKS SUBCUTANEOUS
     Route: 058
     Dates: start: 20101004
  2. ASACOL [Concomitant]
  3. ACETAMINOPHEN [Concomitant]
  4. LOPERAMIDE [Concomitant]

REACTIONS (7)
  - ANAEMIA [None]
  - DEHYDRATION [None]
  - DIARRHOEA [None]
  - FATIGUE [None]
  - ARTHRALGIA [None]
  - STRESS [None]
  - DRUG INEFFECTIVE [None]
